FAERS Safety Report 5239084-X (Version None)
Quarter: 2007Q1

REPORT INFORMATION
  Report Type: 
  Country: None (occurrence: None)
  Receive Date: 20070209
  Receipt Date: 20070124
  Transmission Date: 20070707
  Serious: Yes (Other)
  Sender: FDA-Public Use
  Company Number: 236071

PATIENT
  Sex: Male

DRUGS (3)
  1. AVASTIN [Suspect]
     Indication: BILE DUCT CANCER
  2. GEMZAR [Concomitant]
  3. OXALIPLATIN [Concomitant]

REACTIONS (1)
  - JAUNDICE [None]
